FAERS Safety Report 7789182-1 (Version None)
Quarter: 2011Q3

REPORT INFORMATION
  Report Type: 
  Country: None (occurrence: None)
  Receive Date: 20110930
  Receipt Date: 20110919
  Transmission Date: 20111222
  Serious: Yes (Other)
  Sender: FDA-Public Use
  Company Number: US-JNJFOC-20110812961

PATIENT
  Sex: Female
  Weight: 81.65 kg

DRUGS (20)
  1. KERLONE [Suspect]
     Indication: PRODUCT USED FOR UNKNOWN INDICATION
     Route: 065
     Dates: start: 20010126
  2. TOPIRAMATE [Suspect]
     Indication: MIGRAINE
     Route: 048
     Dates: start: 20080101
  3. CELEXA [Suspect]
     Indication: PRODUCT USED FOR UNKNOWN INDICATION
     Route: 065
  4. TOPIRAMATE [Suspect]
     Indication: CONVULSION
     Route: 048
     Dates: start: 20110101, end: 20110627
  5. TOPIRAMATE [Suspect]
     Route: 048
     Dates: start: 20110101, end: 20110627
  6. TOPAMAX [Suspect]
     Indication: MIGRAINE
     Route: 048
     Dates: start: 20110822
  7. TOPAMAX [Suspect]
     Route: 048
  8. TOPAMAX [Suspect]
     Route: 048
     Dates: start: 20110701
  9. TOPAMAX [Suspect]
     Route: 048
     Dates: start: 20010126
  10. TOPAMAX [Suspect]
     Route: 048
     Dates: start: 20110701
  11. TOPIRAMATE [Suspect]
     Indication: EPILEPSY
     Route: 048
     Dates: start: 20080101
  12. TOPIRAMATE [Suspect]
     Route: 048
     Dates: start: 20050101, end: 20110101
  13. TOPAMAX [Suspect]
     Indication: CONVULSION
     Route: 048
     Dates: start: 20010126
  14. TOPAMAX [Suspect]
     Route: 048
     Dates: start: 20110627, end: 20110701
  15. TOPIRAMATE [Suspect]
     Indication: MIGRAINE
     Route: 048
     Dates: start: 20050101, end: 20110101
  16. TOPAMAX [Suspect]
     Route: 048
     Dates: start: 20110822
  17. TOPAMAX [Suspect]
     Route: 048
  18. TOPAMAX [Suspect]
     Route: 048
     Dates: start: 20110627, end: 20110701
  19. TRAZODONE HYDROCHLORIDE [Suspect]
     Indication: PRODUCT USED FOR UNKNOWN INDICATION
     Route: 065
     Dates: start: 20080101
  20. UNKNOWN MEDICATION [Suspect]
     Indication: PRODUCT USED FOR UNKNOWN INDICATION
     Route: 065

REACTIONS (22)
  - FEAR [None]
  - WRONG TECHNIQUE IN DRUG USAGE PROCESS [None]
  - PRODUCT QUALITY ISSUE [None]
  - ANXIETY [None]
  - UPPER RESPIRATORY TRACT INFECTION [None]
  - HEART RATE INCREASED [None]
  - MEDICATION ERROR [None]
  - OVERDOSE [None]
  - CONVULSION [None]
  - FEELING ABNORMAL [None]
  - FATIGUE [None]
  - ASTHENIA [None]
  - ADVERSE DRUG REACTION [None]
  - TREMOR [None]
  - DECREASED APPETITE [None]
  - ACCIDENTAL EXPOSURE [None]
  - ABNORMAL LOSS OF WEIGHT [None]
  - NERVOUSNESS [None]
  - INSOMNIA [None]
  - DISTURBANCE IN ATTENTION [None]
  - ARTHRALGIA [None]
  - PSYCHOMOTOR HYPERACTIVITY [None]
